FAERS Safety Report 24001021 (Version 1)
Quarter: 2024Q2

REPORT INFORMATION
  Report Type: Report from Study
  Country: ES (occurrence: ES)
  Receive Date: 20240621
  Receipt Date: 20240621
  Transmission Date: 20240715
  Serious: Yes (Other)
  Sender: FDA-Public Use
  Company Number: ES-SA-2023SA099976

PATIENT

DRUGS (7)
  1. CABAZITAXEL [Suspect]
     Active Substance: CABAZITAXEL
     Indication: Hormone-refractory prostate cancer
     Dosage: 20 OR 25 MG/M2 Q3W
     Route: 042
  2. CABAZITAXEL [Suspect]
     Active Substance: CABAZITAXEL
     Indication: Prostate cancer metastatic
  3. DURVALUMAB [Concomitant]
     Active Substance: DURVALUMAB
     Indication: Hormone-refractory prostate cancer
     Dosage: 1500 MG, Q3W
     Route: 042
  4. DURVALUMAB [Concomitant]
     Active Substance: DURVALUMAB
     Indication: Prostate cancer metastatic
  5. PREDNISONE [Concomitant]
     Active Substance: PREDNISONE
     Indication: Hormone-refractory prostate cancer
     Dosage: 10 MG, QD
  6. PREDNISONE [Concomitant]
     Active Substance: PREDNISONE
     Indication: Prostate cancer metastatic
  7. GRANULOCYTE COLONY-STIMULATING FACTOR NOS [Concomitant]
     Active Substance: GRANULOCYTE COLONY-STIMULATING FACTOR NOS
     Indication: Prophylaxis

REACTIONS (1)
  - Pyelitis [Unknown]
